FAERS Safety Report 5421230-6 (Version None)
Quarter: 2007Q3

REPORT INFORMATION
  Report Type: 
  Country: None (occurrence: None)
  Receive Date: 20070719
  Receipt Date: 20060912
  Transmission Date: 20080115
  Serious: Yes (Hospitalization)
  Sender: FDA-Public Use
  Company Number: OMPQ-PR-0608S-1258

PATIENT
  Age: 54 Year
  Sex: Male

DRUGS (5)
  1. OMNIPAQUE 140 [Suspect]
     Indication: BACK PAIN
     Dosage: 9 ML, SINGLE DOSE, I.T.
     Route: 037
     Dates: start: 20060511, end: 20060511
  2. OMNIPAQUE 140 [Suspect]
     Indication: LIMB DISCOMFORT
     Dosage: 9 ML, SINGLE DOSE, I.T.
     Route: 037
     Dates: start: 20060511, end: 20060511
  3. OXYCODONE HYDROCHLORIDE (OXYCONTIN) [Concomitant]
  4. KLONOPIN [Concomitant]
  5. ESCITALOPRAM OXALATE (LEXAPRO) [Concomitant]

REACTIONS (1)
  - MENINGITIS BACTERIAL [None]
